FAERS Safety Report 10732562 (Version 1)
Quarter: 2015Q1

REPORT INFORMATION
  Report Type: Spontaneous
  Country: US (occurrence: None)
  Receive Date: 20150121
  Receipt Date: 20150121
  Transmission Date: 20150721
  Serious: Yes (Other)
  Sender: FDA-Public Use
  Company Number: DEP_02450_2015

PATIENT
  Sex: Female
  Weight: 64.86 kg

DRUGS (3)
  1. GRALISE [Suspect]
     Active Substance: GABAPENTIN
     Indication: PARAESTHESIA
     Route: 048
     Dates: start: 2011, end: 2014
  2. GRALISE [Suspect]
     Active Substance: GABAPENTIN
     Indication: OFF LABEL USE
     Route: 048
     Dates: start: 2011, end: 2014
  3. GRALISE [Suspect]
     Active Substance: GABAPENTIN
     Indication: ARNOLD-CHIARI MALFORMATION
     Route: 048
     Dates: start: 2011, end: 2014

REACTIONS (8)
  - Drug dose omission [None]
  - Withdrawal syndrome [None]
  - Nasopharyngitis [None]
  - Malaise [None]
  - Asthenia [None]
  - Dizziness [None]
  - Diarrhoea [None]
  - Vomiting [None]

NARRATIVE: CASE EVENT DATE: 2014
